FAERS Safety Report 24162348 (Version 2)
Quarter: 2024Q3

REPORT INFORMATION
  Report Type: Spontaneous
  Country: NL (occurrence: NL)
  Receive Date: 20240801
  Receipt Date: 20240827
  Transmission Date: 20241017
  Serious: Yes (Hospitalization)
  Sender: TEVA
  Company Number: None

PATIENT
  Age: 72 Year
  Sex: Female

DRUGS (9)
  1. CLOPIDOGREL [Suspect]
     Active Substance: CLOPIDOGREL BISULFATE
     Indication: Angina pectoris
     Dosage: 1 PIECE 1 X PER DAY; CLOPIDOGREL HYDROGEN SULFATE / BRAND NAME NOT SPECIFIED
     Route: 065
     Dates: start: 20240626, end: 20240708
  2. ALENDRONIC ACID [Concomitant]
     Active Substance: ALENDRONIC ACID
     Indication: Product used for unknown indication
     Dosage: / BRAND NAME NOT SPECIFIED
     Route: 065
  3. ROSUVASTATIN [Concomitant]
     Active Substance: ROSUVASTATIN\ROSUVASTATIN CALCIUM
     Indication: Product used for unknown indication
     Dosage: / BRAND NAME NOT SPECIFIED
     Route: 065
  4. SOLIFENACIN [Concomitant]
     Active Substance: SOLIFENACIN
     Indication: Product used for unknown indication
     Dosage: / BRAND NAME NOT SPECIFIED
     Route: 065
  5. CALCIUM COLECALCIFEROL [Concomitant]
     Indication: Product used for unknown indication
     Dosage: 500MG/200IE / BRAND NAME NOT SPECIFIED
     Route: 065
  6. EZETIMIBE [Concomitant]
     Active Substance: EZETIMIBE
     Indication: Product used for unknown indication
     Dosage: / BRAND NAME NOT SPECIFIED
     Route: 065
  7. PANTOPRAZOLE [Concomitant]
     Active Substance: PANTOPRAZOLE
     Indication: Product used for unknown indication
     Dosage: 20MG / STOMACH ACID HTP TABLET
     Route: 065
  8. PREDNISONE [Concomitant]
     Active Substance: PREDNISONE
     Indication: Product used for unknown indication
     Dosage: / BRAND NAME NOT SPECIFIED
     Route: 065
  9. LISINOPRIL [Concomitant]
     Active Substance: LISINOPRIL
     Indication: Product used for unknown indication
     Dosage: / BRAND NAME NOT SPECIFIED
     Route: 065

REACTIONS (1)
  - Toxic skin eruption [Recovering/Resolving]
